FAERS Safety Report 14337314 (Version 2)
Quarter: 2018Q2

REPORT INFORMATION
  Report Type: Spontaneous
  Country: US (occurrence: US)
  Receive Date: 20171229
  Receipt Date: 20180503
  Transmission Date: 20180711
  Serious: Yes (Hospitalization, Other)
  Sender: FDA-Public Use
  Company Number: US-JNJFOC-20171234696

PATIENT
  Age: 77 Year
  Sex: Male

DRUGS (1)
  1. INVOKANA [Suspect]
     Active Substance: CANAGLIFLOZIN
     Indication: TYPE 2 DIABETES MELLITUS
     Route: 048
     Dates: start: 20151027

REACTIONS (3)
  - Skin ulcer [Recovering/Resolving]
  - Osteomyelitis [Recovering/Resolving]
  - Toe amputation [Unknown]

NARRATIVE: CASE EVENT DATE: 201702
